FAERS Safety Report 8497598-3 (Version None)
Quarter: 2012Q3

REPORT INFORMATION
  Report Type: 
  Country: None (occurrence: None)
  Receive Date: 20120709
  Receipt Date: 20120604
  Transmission Date: 20120928
  Serious: No
  Sender: FDA-Public Use
  Company Number: US-AMGEN-USASP2011023944

PATIENT
  Age: 21 Year
  Sex: Male
  Weight: 76.372 kg

DRUGS (5)
  1. ENBREL [Suspect]
     Indication: ANKYLOSING SPONDYLITIS
     Dosage: 50 MG, QWK
     Dates: start: 20110401
  2. ENBREL [Suspect]
     Dosage: UNK
     Dates: start: 20110101
  3. IBUPROFEN (ADVIL) [Concomitant]
     Indication: INSOMNIA
  4. METHOTREXATE [Concomitant]
     Dosage: 25 MG, QWK
     Dates: start: 20110901
  5. RELAFEN [Concomitant]
     Dosage: 500 MG, UNK
     Route: 048

REACTIONS (6)
  - PAINFUL RESPIRATION [None]
  - SPONDYLOARTHROPATHY [None]
  - HYPERSENSITIVITY [None]
  - PRODUCTIVE COUGH [None]
  - HYPOAESTHESIA [None]
  - INSOMNIA [None]
